FAERS Safety Report 10104647 (Version 2)
Quarter: 2014Q2

REPORT INFORMATION
  Report Type: Other
  Country: US (occurrence: US)
  Receive Date: 20140424
  Receipt Date: 20140625
  Transmission Date: 20141212
  Serious: Yes (Hospitalization, Other)
  Sender: FDA-Public Use
  Company Number: US-GSKPPD-2014GSK003681

PATIENT
  Age: 37 Year
  Sex: Female

DRUGS (6)
  1. AVANDIA [Suspect]
     Indication: DIABETES MELLITUS
     Route: 048
     Dates: start: 2002, end: 2005
  2. METOPROLOL [Concomitant]
     Route: 048
     Dates: start: 200201
  3. LISINOPRIL [Concomitant]
     Route: 048
     Dates: start: 200201
  4. ZOCOR [Concomitant]
     Route: 048
     Dates: start: 200201
  5. ASPIRIN [Concomitant]
     Route: 048
     Dates: start: 200201
  6. PLAVIX [Concomitant]
     Route: 048
     Dates: start: 200201

REACTIONS (2)
  - Myocardial infarction [None]
  - Myocardial ischaemia [Recovered/Resolved]
